FAERS Safety Report 13647430 (Version 1)
Quarter: 2017Q2

REPORT INFORMATION
  Report Type: Spontaneous
  Country: US (occurrence: US)
  Receive Date: 20170613
  Receipt Date: 20170613
  Transmission Date: 20170830
  Serious: Yes (Other)
  Sender: FDA-Public Use
  Company Number: None

PATIENT
  Age: 50 Year
  Sex: Male

DRUGS (1)
  1. REVLIMID [Suspect]
     Active Substance: LENALIDOMIDE
     Indication: PLASMA CELL MYELOMA
     Route: 048
     Dates: start: 20170316

REACTIONS (5)
  - Peripheral swelling [None]
  - Local swelling [None]
  - Therapy cessation [None]
  - Abdominal pain upper [None]
  - Groin pain [None]

NARRATIVE: CASE EVENT DATE: 20170320
